FAERS Safety Report 13768791 (Version 2)
Quarter: 2017Q3

REPORT INFORMATION
  Report Type: Spontaneous
  Country: US (occurrence: US)
  Receive Date: 20170719
  Receipt Date: 20170719
  Transmission Date: 20171127
  Serious: No
  Sender: FDA-Public Use
  Company Number: US-APOTEX-2016AP010791

PATIENT
  Age: 67 Year
  Sex: Female

DRUGS (5)
  1. PREGABALIN. [Suspect]
     Active Substance: PREGABALIN
     Indication: PRODUCT USED FOR UNKNOWN INDICATION
     Route: 065
  2. TRAMADOL HYDROCHLORIDE. [Suspect]
     Active Substance: TRAMADOL HYDROCHLORIDE
     Indication: PRODUCT USED FOR UNKNOWN INDICATION
     Route: 065
  3. AMLODIPINE BESYLATE. [Suspect]
     Active Substance: AMLODIPINE BESYLATE
     Indication: PRODUCT USED FOR UNKNOWN INDICATION
     Route: 065
  4. HYDROMORPHONE HCL AND BUPIVACAINE HCL [Suspect]
     Active Substance: BUPIVACAINE\HYDROMORPHONE
     Indication: POST LAMINECTOMY SYNDROME
     Dosage: 60 MCG/DAY
     Route: 037
  5. HYDROMORPHONE HCL AND BUPIVACAINE HCL [Suspect]
     Active Substance: BUPIVACAINE\HYDROMORPHONE
     Indication: ANALGESIC THERAPY

REACTIONS (1)
  - Oedema peripheral [Recovered/Resolved]
